FAERS Safety Report 4864592-0 (Version None)
Quarter: 2005Q4

REPORT INFORMATION
  Report Type: 
  Country: None (occurrence: None)
  Receive Date: 20051222
  Receipt Date: 20051215
  Transmission Date: 20060501
  Serious: Yes (Other)
  Sender: FDA-Public Use
  Company Number: PHNU2005DE04199

PATIENT
  Sex: Female

DRUGS (2)
  1. LOCOL [Suspect]
     Indication: HYPERCHOLESTEROLAEMIA
     Dosage: 80 MG, QD
     Route: 048
     Dates: start: 20050901
  2. CLOPIDOGREL [Concomitant]

REACTIONS (2)
  - PARAESTHESIA [None]
  - POLYNEUROPATHY ALCOHOLIC [None]
